FAERS Safety Report 11632976 (Version 1)
Quarter: 2015Q4

REPORT INFORMATION
  Report Type: Other
  Country: CA (occurrence: CA)
  Receive Date: 20151015
  Receipt Date: 20151015
  Transmission Date: 20160304
  Serious: Yes (Other)
  Sender: FDA-Public Use
  Company Number: CA-APOTEX-2015AP013391

PATIENT
  Age: 39 Year
  Sex: Male
  Weight: 68.27 kg

DRUGS (2)
  1. APO-QUETIAPINE [Suspect]
     Active Substance: QUETIAPINE
     Indication: SUICIDAL IDEATION
     Dosage: UNK
     Route: 065
  2. APO-QUETIAPINE [Suspect]
     Active Substance: QUETIAPINE
     Indication: ANGER

REACTIONS (2)
  - Drug ineffective [Unknown]
  - Product substitution issue [Unknown]
